FAERS Safety Report 5552088-2 (Version None)
Quarter: 2007Q4

REPORT INFORMATION
  Report Type: 
  Country: None (occurrence: None)
  Receive Date: 20071210
  Receipt Date: 20071125
  Transmission Date: 20080405
  Serious: Yes (Hospitalization)
  Sender: FDA-Public Use
  Company Number: 2007S1012394

PATIENT
  Age: 65 Year
  Sex: Female

DRUGS (2)
  1. METFORMIN (METFORMIN) [Suspect]
     Indication: TYPE 2 DIABETES MELLITUS
     Dosage: 500 MG; TWICE A DAY
     Dates: start: 19980101
  2. GLYBURIDE [Suspect]
     Indication: TYPE 2 DIABETES MELLITUS
     Dosage: 10 MG; TWICE A DAY
     Dates: start: 19980101

REACTIONS (8)
  - ANAEMIA MEGALOBLASTIC [None]
  - ASTHENIA [None]
  - BLOOD LACTATE DEHYDROGENASE INCREASED [None]
  - CERVICOBRACHIAL SYNDROME [None]
  - DEEP VEIN THROMBOSIS [None]
  - DYSPNOEA EXERTIONAL [None]
  - HYPERHOMOCYSTEINAEMIA [None]
  - VITAMIN B12 DEFICIENCY [None]
